FAERS Safety Report 7672918-8 (Version None)
Quarter: 2011Q3

REPORT INFORMATION
  Report Type: 
  Country: None (occurrence: None)
  Receive Date: 20110809
  Receipt Date: 20110803
  Transmission Date: 20111222
  Serious: Yes (Other)
  Sender: FDA-Public Use
  Company Number: PHEH2010US03394

PATIENT
  Sex: Female

DRUGS (3)
  1. ULTRAM [Concomitant]
  2. NEURONTIN [Concomitant]
     Dosage: 300 MG, QD
  3. ZELNORM [Suspect]
     Route: 048

REACTIONS (24)
  - ATRIOVENTRICULAR BLOCK FIRST DEGREE [None]
  - CARDIAC DISORDER [None]
  - INJURY [None]
  - CHILLS [None]
  - DYSPNOEA [None]
  - ASTHENIA [None]
  - HEART RATE IRREGULAR [None]
  - CARDIAC MURMUR [None]
  - ARTHRITIS [None]
  - OEDEMA PERIPHERAL [None]
  - SWELLING [None]
  - NAUSEA [None]
  - PALPITATIONS [None]
  - INSOMNIA [None]
  - ALOPECIA [None]
  - ABDOMINAL PAIN [None]
  - CHEST DISCOMFORT [None]
  - DECREASED APPETITE [None]
  - CHEST PAIN [None]
  - HYPOAESTHESIA [None]
  - ELECTROCARDIOGRAM ST-T CHANGE [None]
  - SUPRAVENTRICULAR EXTRASYSTOLES [None]
  - PYREXIA [None]
  - FATIGUE [None]
